FAERS Safety Report 7948978-3 (Version None)
Quarter: 2011Q4

REPORT INFORMATION
  Report Type: 
  Country: None (occurrence: None)
  Receive Date: 20111130
  Receipt Date: 20111128
  Transmission Date: 20120403
  Serious: Yes (Hospitalization)
  Sender: FDA-Public Use
  Company Number: IT-PFIZER INC-2011209317

PATIENT
  Age: 30 Year
  Sex: Female

DRUGS (1)
  1. MEDROL [Suspect]
     Indication: RHINITIS ALLERGIC
     Dosage: 16 MG, DAILY
     Route: 048
     Dates: start: 20110324, end: 20110401

REACTIONS (3)
  - TREMOR [None]
  - SINUS TACHYCARDIA [None]
  - DRY MOUTH [None]
